FAERS Safety Report 6735509-9 (Version None)
Quarter: 2010Q2

REPORT INFORMATION
  Report Type: 
  Country: None (occurrence: None)
  Receive Date: 20100521
  Receipt Date: 20100511
  Transmission Date: 20101027
  Serious: Yes (Hospitalization)
  Sender: FDA-Public Use
  Company Number: CA-JNJFOC-20091202284

PATIENT
  Sex: Female
  Weight: 81 kg

DRUGS (1)
  1. REMICADE [Suspect]
     Indication: RHEUMATOID ARTHRITIS
     Dosage: TO PRESENT
     Route: 042
     Dates: start: 20090505

REACTIONS (4)
  - HEADACHE [None]
  - NECK PAIN [None]
  - OEDEMA [None]
  - TYPE 2 DIABETES MELLITUS [None]
